FAERS Safety Report 9879422 (Version 2)
Quarter: 2014Q1

REPORT INFORMATION
  Report Type: Spontaneous
  Country: JP (occurrence: JP)
  Receive Date: 20140206
  Receipt Date: 20140206
  Transmission Date: 20141002
  Serious: Yes (Hospitalization)
  Sender: FDA-Public Use
  Company Number: JP-KOWA-2013S1002251

PATIENT
  Age: 70 Year
  Sex: Male
  Weight: 60 kg

DRUGS (7)
  1. LIVALO [Suspect]
     Indication: DYSLIPIDAEMIA
     Route: 048
     Dates: end: 20131226
  2. THYRADIN [Concomitant]
     Route: 048
  3. THYRADIN [Concomitant]
     Route: 048
  4. EPADEL-S [Concomitant]
     Route: 048
  5. HYDROCORTISONE [Concomitant]
     Route: 048
  6. ARICEPT [Concomitant]
     Route: 048
  7. REBAMIPIDE [Concomitant]
     Route: 048

REACTIONS (3)
  - Rhabdomyolysis [Recovered/Resolved]
  - Dysarthria [Recovered/Resolved]
  - Liver disorder [Recovered/Resolved]
